FAERS Safety Report 5810639-4 (Version None)
Quarter: 2008Q3

REPORT INFORMATION
  Report Type: 
  Country: None (occurrence: None)
  Receive Date: 20080715
  Receipt Date: 20080711
  Transmission Date: 20090109
  Serious: Yes (Death)
  Sender: FDA-Public Use
  Company Number: US-TYCO HEALTHCARE/MALLINCKRODT-T200801147

PATIENT

DRUGS (1)
  1. METHADOSE [Suspect]

REACTIONS (2)
  - DRUG DIVERSION [None]
  - LOSS OF CONSCIOUSNESS [None]
